FAERS Safety Report 25211356 (Version 2)
Quarter: 2025Q2

REPORT INFORMATION
  Report Type: Report from Study
  Country: US (occurrence: US)
  Receive Date: 20250417
  Receipt Date: 20250522
  Transmission Date: 20250717
  Serious: Yes (Other)
  Sender: ABBVIE
  Company Number: US-ABBVIE-6229690

PATIENT
  Sex: Female

DRUGS (1)
  1. RINVOQ [Suspect]
     Active Substance: UPADACITINIB
     Indication: Dermatitis atopic
     Route: 048
     Dates: start: 20240404

REACTIONS (4)
  - Cataract [Recovering/Resolving]
  - Eczema [Recovering/Resolving]
  - Blood cholesterol increased [Unknown]
  - Solar lentigo [Recovering/Resolving]
